FAERS Safety Report 17976205 (Version 2)
Quarter: 2020Q3

REPORT INFORMATION
  Report Type: Spontaneous
  Country: FR (occurrence: FR)
  Receive Date: 20200703
  Receipt Date: 20200714
  Transmission Date: 20201103
  Serious: Yes (Other)
  Sender: FDA-Public Use
  Company Number: FR-AUROBINDO-AUR-APL-2020-031405

PATIENT
  Sex: Male

DRUGS (9)
  1. SKENAN [Suspect]
     Active Substance: MORPHINE SULFATE
     Indication: SCOLIOSIS
     Dosage: UNK
     Route: 048
  2. ACTISKENAN [Suspect]
     Active Substance: MORPHINE SULFATE
     Indication: PRODUCT USED FOR UNKNOWN INDICATION
     Dosage: 140 MILLIGRAM, 1 TOTAL
     Route: 042
     Dates: start: 202006, end: 202006
  3. TRAMADOL. [Suspect]
     Active Substance: TRAMADOL
     Indication: KYPHOSIS
  4. TRAMADOL. [Suspect]
     Active Substance: TRAMADOL
     Indication: BACK PAIN
     Dosage: 300 MILLIGRAM, ONCE A DAY (IMMEDIATE RELEASE)
     Route: 065
  5. SKENAN [Suspect]
     Active Substance: MORPHINE SULFATE
     Indication: KYPHOSIS
     Dosage: UNK
     Route: 045
  6. TRAMADOL. [Suspect]
     Active Substance: TRAMADOL
     Indication: SCOLIOSIS
  7. SUBUTEX [Concomitant]
     Active Substance: BUPRENORPHINE HYDROCHLORIDE
     Indication: PRODUCT USED FOR UNKNOWN INDICATION
     Dosage: UNK
     Route: 042
  8. TRAMADOL. [Suspect]
     Active Substance: TRAMADOL
     Indication: PRODUCT SUBSTITUTION
  9. SKENAN [Suspect]
     Active Substance: MORPHINE SULFATE
     Dosage: UNK
     Route: 042
     Dates: start: 202006, end: 202006

REACTIONS (21)
  - Heart rate increased [Recovered/Resolved]
  - Drug tolerance increased [Unknown]
  - Intentional product misuse [Unknown]
  - Fear of death [Recovered/Resolved]
  - Daydreaming [Recovered/Resolved]
  - Somnolence [Unknown]
  - Tachycardia [Unknown]
  - Drug diversion [Unknown]
  - Drug abuse [Unknown]
  - Sedation [Unknown]
  - Intentional product use issue [Unknown]
  - Product use in unapproved indication [Unknown]
  - Overdose [Recovered/Resolved]
  - Burning sensation [Recovered/Resolved]
  - Anxiety [Recovered/Resolved]
  - Pruritus [Unknown]
  - Vision blurred [Recovered/Resolved]
  - Erythema [Recovered/Resolved]
  - Dyspnoea [Recovered/Resolved]
  - Feeling hot [Recovered/Resolved]
  - Feeling of relaxation [Unknown]

NARRATIVE: CASE EVENT DATE: 202006
